FAERS Safety Report 18107677 (Version 4)
Quarter: 2020Q4

REPORT INFORMATION
  Report Type: Spontaneous
  Country: US (occurrence: US)
  Receive Date: 20200803
  Receipt Date: 20201021
  Transmission Date: 20210113
  Serious: Yes (Other)
  Sender: FDA-Public Use
  Company Number: US-GILEAD-2020-0486919

PATIENT
  Age: 47 Year
  Sex: Male

DRUGS (4)
  1. TORADOL [Concomitant]
     Active Substance: KETOROLAC TROMETHAMINE
     Indication: OSTEOPOROSIS
     Dosage: UNK
     Dates: start: 2019
  2. ATRIPLA [Suspect]
     Active Substance: EFAVIRENZ\EMTRICITABINE\TENOFOVIR DISOPROXIL FUMARATE
     Indication: HIV INFECTION
     Dosage: UNK
     Route: 048
     Dates: start: 20100224, end: 20150921
  3. GENVOYA [Concomitant]
     Active Substance: COBICISTAT\ELVITEGRAVIR\EMTRICITABINE\TENOFOVIR ALAFENAMIDE FUMARATE
     Indication: HIV INFECTION
  4. BIKTARVY [Concomitant]
     Active Substance: BICTEGRAVIR SODIUM\EMTRICITABINE\TENOFOVIR ALAFENAMIDE FUMARATE
     Indication: HIV INFECTION

REACTIONS (8)
  - Osteoporosis [Not Recovered/Not Resolved]
  - Anhedonia [Unknown]
  - Fracture [Not Recovered/Not Resolved]
  - Tooth loss [Not Recovered/Not Resolved]
  - Emotional distress [Unknown]
  - Pain [Unknown]
  - Bone density decreased [Unknown]
  - Anxiety [Unknown]

NARRATIVE: CASE EVENT DATE: 2015
